FAERS Safety Report 5315885-4 (Version None)
Quarter: 2007Q1

REPORT INFORMATION
  Report Type: 
  Country: None (occurrence: None)
  Receive Date: 20070130
  Receipt Date: 20061023
  Transmission Date: 20070707
  Serious: No
  Sender: FDA-Public Use
  Company Number: 200611146US

PATIENT
  Sex: Female

DRUGS (6)
  1. KETEK [Suspect]
     Indication: SINUSITIS
     Dosage: 800 MG QD PO
     Route: 048
     Dates: start: 20060131
  2. PREVACID [Concomitant]
  3. TEGASEROD [Concomitant]
  4. AMBIEN [Concomitant]
  5. CHARCOAL, ACTIVATED (CHARCOAL) [Concomitant]
  6. VITAMINS [Concomitant]

REACTIONS (4)
  - ABDOMINAL PAIN [None]
  - FEELING ABNORMAL [None]
  - NAUSEA [None]
  - RESTLESSNESS [None]
